FAERS Safety Report 6152100-6 (Version None)
Quarter: 2009Q2

REPORT INFORMATION
  Report Type: 
  Country: None (occurrence: None)
  Receive Date: 20090410
  Receipt Date: 20090402
  Transmission Date: 20091009
  Serious: Yes (Hospitalization)
  Sender: FDA-Public Use
  Company Number: PHHY2009CH12421

PATIENT
  Sex: Male

DRUGS (3)
  1. TEGRETOL [Suspect]
     Indication: GRAND MAL CONVULSION
     Dosage: 400-800 MG/DAY
     Dates: start: 19960101, end: 19990101
  2. NEXIUM [Concomitant]
     Dosage: 20 MG/DAY
  3. TORSEMIDE [Concomitant]
     Dosage: 10 MG/DAY

REACTIONS (4)
  - GRANULOMATOUS LIVER DISEASE [None]
  - LIVER INJURY [None]
  - OESOPHAGEAL VARICES HAEMORRHAGE [None]
  - PORTAL VEIN THROMBOSIS [None]
